FAERS Safety Report 23246314 (Version 1)
Quarter: 2023Q4

REPORT INFORMATION
  Report Type: Spontaneous
  Country: US (occurrence: US)
  Receive Date: 20231130
  Receipt Date: 20231130
  Transmission Date: 20240110
  Serious: Yes (Other)
  Sender: FDA-Public Use
  Company Number: US-MYLANLABS-2023M1126816

PATIENT
  Age: 49 Year
  Sex: Female

DRUGS (1)
  1. DEXAMETHASONE [Suspect]
     Active Substance: DEXAMETHASONE
     Indication: Adrenal adenoma
     Dosage: 1 MILLIGRAM (OVERNIGHT)
     Route: 065

REACTIONS (1)
  - Treatment failure [Unknown]
